FAERS Safety Report 7097505-4 (Version None)
Quarter: 2010Q4

REPORT INFORMATION
  Report Type: 
  Country: None (occurrence: None)
  Receive Date: 20101111
  Receipt Date: 20101029
  Transmission Date: 20110411
  Serious: Yes (Other)
  Sender: FDA-Public Use
  Company Number: PHHY2010ZA72968

PATIENT
  Age: 33 Year
  Sex: Female

DRUGS (3)
  1. ZOMETA [Suspect]
     Indication: METASTASES TO BONE
     Dosage: 4 MG, UNK
     Dates: start: 20101028
  2. SEPTRAN [Concomitant]
     Dosage: UNK
     Dates: start: 20101028
  3. XELODA [Concomitant]
     Dosage: UNK
     Dates: start: 20101028

REACTIONS (3)
  - BONE PAIN [None]
  - PYREXIA [None]
  - TERMINAL STATE [None]
